FAERS Safety Report 11733928 (Version 1)
Quarter: 2015Q4

REPORT INFORMATION
  Report Type: Spontaneous
  Country: US (occurrence: US)
  Receive Date: 20151110
  Receipt Date: 20151110
  Transmission Date: 20160304
  Serious: No
  Sender: FDA-Public Use
  Company Number: US-ELI_LILLY_AND_COMPANY-US201202002343

PATIENT
  Sex: Female

DRUGS (3)
  1. FORTEO [Suspect]
     Active Substance: TERIPARATIDE
     Indication: OSTEOPOROSIS
     Dosage: 20 UG, QD
     Route: 065
     Dates: start: 20120130
  2. FORTEO [Suspect]
     Active Substance: TERIPARATIDE
     Dosage: 20 UG, QD
     Route: 065
  3. FORTEO [Suspect]
     Active Substance: TERIPARATIDE
     Dosage: 20 UG, QD
     Route: 065

REACTIONS (15)
  - Injury associated with device [Unknown]
  - Anger [Unknown]
  - Gastritis [Unknown]
  - Meniere^s disease [Unknown]
  - Vertigo [Unknown]
  - Spider vein [Unknown]
  - Anxiety [Unknown]
  - Muscle spasms [Unknown]
  - Pain in extremity [Unknown]
  - Fatigue [Unknown]
  - Injection site bruising [Unknown]
  - Abdominal discomfort [Unknown]
  - Pain [Unknown]
  - Intentional product misuse [Unknown]
  - Superficial vein prominence [Not Recovered/Not Resolved]
